FAERS Safety Report 7221273-6 (Version None)
Quarter: 2011Q1

REPORT INFORMATION
  Report Type: 
  Country: None (occurrence: None)
  Receive Date: 20110112
  Receipt Date: 20110103
  Transmission Date: 20110831
  Serious: Yes (Other)
  Sender: FDA-Public Use
  Company Number: PHHY2011FR01677

PATIENT
  Age: 68 Year
  Sex: Female

DRUGS (8)
  1. APROVEL [Concomitant]
     Indication: HYPERTENSION
  2. CACIT [Concomitant]
  3. FORADIL [Concomitant]
     Indication: ASTHMA
  4. ISMELIN [Suspect]
     Indication: COMPLEX REGIONAL PAIN SYNDROME
     Dosage: UNK
     Dates: start: 20101215
  5. MOROXYDINE [Concomitant]
     Indication: HYPERTENSION
  6. FLIXOTIDE [Concomitant]
     Indication: ASTHMA
  7. VITAMIN D3 [Concomitant]
  8. ACLASTA [Suspect]
     Indication: OSTEOPOROSIS
     Dates: start: 20101228

REACTIONS (5)
  - VIITH NERVE PARALYSIS [None]
  - CHILLS [None]
  - PYREXIA [None]
  - PAIN [None]
  - EYELID DISORDER [None]
